FAERS Safety Report 7706671-6 (Version None)
Quarter: 2011Q3

REPORT INFORMATION
  Report Type: 
  Country: None (occurrence: None)
  Receive Date: 20110824
  Receipt Date: 20110524
  Transmission Date: 20111222
  Serious: No
  Sender: FDA-Public Use
  Company Number: US-GLAXOSMITHKLINE-A0929516A

PATIENT

DRUGS (1)
  1. ARZERRA [Suspect]

REACTIONS (1)
  - DISEASE PROGRESSION [None]
